FAERS Safety Report 7769312-8 (Version None)
Quarter: 2011Q3

REPORT INFORMATION
  Report Type: 
  Country: None (occurrence: None)
  Receive Date: 20110922
  Receipt Date: 20110912
  Transmission Date: 20111222
  Serious: No
  Sender: FDA-Public Use
  Company Number: US-B.I. PHARMACEUTICALS,INC./RIDGEFIELD-2011-BP-20843BP

PATIENT
  Sex: Female

DRUGS (13)
  1. VITAMIN D [Concomitant]
     Indication: OSTEOPENIA
     Dosage: 1000 MG
     Route: 048
     Dates: start: 20090101
  2. PRADAXA [Suspect]
     Indication: ATRIAL FIBRILLATION
     Dosage: 300 MG
     Route: 048
     Dates: start: 20110823
  3. VITAMIN C (ESTER C) [Concomitant]
     Indication: ROUTINE HEALTH MAINTENANCE
     Dosage: 1000 MG
     Route: 048
     Dates: start: 19910101
  4. VITAMIN B COMPLEX CAP [Concomitant]
     Indication: ROUTINE HEALTH MAINTENANCE
     Dosage: 50 MG
     Route: 048
     Dates: start: 20090101
  5. CO Q 10 [Concomitant]
     Indication: ROUTINE HEALTH MAINTENANCE
     Dosage: 50 MG
     Route: 048
     Dates: start: 20010101
  6. HYZAAR [Concomitant]
     Indication: HYPERTENSION
     Route: 048
     Dates: start: 20080101
  7. LOVAZA [Concomitant]
     Indication: ROUTINE HEALTH MAINTENANCE
     Dosage: 1400 MG
     Route: 048
     Dates: start: 20090101
  8. CALCIUM/MAGNESIUM CITRATE [Concomitant]
     Indication: SUPPLEMENTATION THERAPY
     Dosage: 1200 MG
     Route: 048
     Dates: start: 19910101
  9. ATENOLOL [Concomitant]
     Indication: ATRIAL FIBRILLATION
     Dosage: 100 MG
     Route: 048
     Dates: start: 20020101
  10. VITAMIN A [Concomitant]
     Indication: ROUTINE HEALTH MAINTENANCE
     Dosage: 1000 U
     Route: 048
     Dates: start: 20090101
  11. DIGOXIN [Concomitant]
     Indication: ATRIAL FIBRILLATION
     Dosage: 0.125 MG
     Route: 048
     Dates: start: 20080101
  12. LIBRAX [Concomitant]
     Indication: IRRITABLE BOWEL SYNDROME
     Route: 048
  13. SUPER PRO BIOTICS [Concomitant]
     Indication: IRRITABLE BOWEL SYNDROME
     Route: 048
     Dates: start: 20110701

REACTIONS (3)
  - LARYNGITIS [None]
  - DYSENTERY [None]
  - DYSPEPSIA [None]
